FAERS Safety Report 4497503-0 (Version None)
Quarter: 2004Q4

REPORT INFORMATION
  Report Type: 
  Country: None (occurrence: None)
  Receive Date: 20041110
  Receipt Date: 20041028
  Transmission Date: 20050328
  Serious: Yes (Other)
  Sender: FDA-Public Use
  Company Number: FR-ROCHE-384594

PATIENT
  Age: 26 Year
  Sex: Male

DRUGS (5)
  1. MYCOPHENOLATE MOFETIL [Suspect]
     Route: 065
     Dates: start: 19970615
  2. MYCOPHENOLATE MOFETIL [Suspect]
     Route: 065
  3. CYCLOSPORINE [Concomitant]
     Dates: start: 19930615
  4. AZATHIOPRINE [Concomitant]
     Dosage: STOPPED IN 1997 AND RESTARTED AFTER MYCOPHENOLATE MOFETIL WAS DEFINITELY DISCONTINUED.
     Dates: start: 19930615
  5. STEROIDS NOS [Concomitant]
     Dates: start: 19930615

REACTIONS (7)
  - BLOOD CREATININE INCREASED [None]
  - BLOOD FOLATE DECREASED [None]
  - HYPOCHOLESTEROLAEMIA [None]
  - INTESTINAL VILLI ATROPHY [None]
  - NORMOCHROMIC NORMOCYTIC ANAEMIA [None]
  - RECTAL ULCER [None]
  - VITAMIN B12 DECREASED [None]
